FAERS Safety Report 9449754 (Version 3)
Quarter: 2013Q4

REPORT INFORMATION
  Report Type: Spontaneous
  Country: FR (occurrence: FR)
  Receive Date: 20130809
  Receipt Date: 20131223
  Transmission Date: 20140711
  Serious: Yes (Hospitalization)
  Sender: FDA-Public Use
  Company Number: FR-JNJFOC-20130718903

PATIENT
  Age: 73 Year
  Sex: Female
  Weight: 65 kg

DRUGS (12)
  1. DUROGESIC [Suspect]
     Indication: PAIN
     Route: 062
  2. DUROGESIC [Suspect]
     Indication: PAIN
     Route: 062
     Dates: start: 20130406, end: 201306
  3. VELCADE [Suspect]
     Indication: PLASMA CELL MYELOMA
     Route: 065
  4. VELCADE [Suspect]
     Indication: PLASMA CELL MYELOMA
     Route: 065
     Dates: start: 20130604
  5. VELCADE [Suspect]
     Indication: PLASMA CELL MYELOMA
     Dosage: TREATMENT WAS ADMINISTERED ON TUESDAYS AND FRIDAYS
     Route: 065
     Dates: start: 20130409
  6. CORTISONE [Suspect]
     Indication: PLASMA CELL MYELOMA
     Route: 065
  7. THALIDOMIDE [Suspect]
     Indication: PRODUCT USED FOR UNKNOWN INDICATION
     Route: 065
  8. THALIDOMIDE [Suspect]
     Indication: PRODUCT USED FOR UNKNOWN INDICATION
     Route: 065
  9. LEXOMIL [Concomitant]
     Route: 065
  10. DEXAMETHASONE [Concomitant]
     Indication: PLASMA CELL MYELOMA
     Route: 042
     Dates: start: 20130409, end: 20130604
  11. CORTANCYL [Concomitant]
     Route: 065
     Dates: start: 20130409, end: 201306
  12. HYDROCORTISONE [Concomitant]
     Route: 065
     Dates: start: 20130409

REACTIONS (8)
  - Abnormal dreams [Recovered/Resolved]
  - Personality disorder [Recovered/Resolved]
  - Depression [Recovered/Resolved]
  - Suicide attempt [Unknown]
  - Amnesia [Recovered/Resolved]
  - Fatigue [Unknown]
  - Somnolence [Unknown]
  - Asthenia [Unknown]
